FAERS Safety Report 20596425 (Version 1)
Quarter: 2022Q1

REPORT INFORMATION
  Report Type: Spontaneous
  Country: US (occurrence: US)
  Receive Date: 20220315
  Receipt Date: 20220315
  Transmission Date: 20220424
  Serious: No
  Sender: FDA-Public Use
  Company Number: US-GW PHARMA-202203USGW01230

PATIENT
  Age: 36 Year
  Sex: Female

DRUGS (2)
  1. EPIDIOLEX [Suspect]
     Active Substance: CANNABIDIOL
     Indication: Lennox-Gastaut syndrome
     Dosage: 660 MILLIGRAM (DOSE INCREASED TO 4 ML BID)
     Route: 048
     Dates: start: 201910
  2. EPIDIOLEX [Suspect]
     Active Substance: CANNABIDIOL
     Indication: Epilepsy

REACTIONS (5)
  - Seizure [Unknown]
  - Nervousness [Unknown]
  - Weight increased [Unknown]
  - Product supply issue [Unknown]
  - Intentional product use issue [Unknown]

NARRATIVE: CASE EVENT DATE: 20220301
